FAERS Safety Report 5499050-6 (Version None)
Quarter: 2007Q4

REPORT INFORMATION
  Report Type: 
  Country: None (occurrence: None)
  Receive Date: 20071026
  Receipt Date: 20070523
  Transmission Date: 20080405
  Serious: No
  Sender: FDA-Public Use
  Company Number: A0652601A

PATIENT
  Age: 67 Year
  Sex: Male

DRUGS (9)
  1. ADVAIR DISKUS 100/50 [Suspect]
     Indication: TRACHEAL PAIN
     Dosage: 1PUFF TWICE PER DAY
     Route: 055
     Dates: start: 20070522
  2. ACTOS [Concomitant]
  3. ACIPHEX [Concomitant]
  4. ZETIA [Concomitant]
  5. CRESTOR [Concomitant]
  6. LISINOPRIL [Concomitant]
  7. ATIVAN [Concomitant]
  8. BUSERELINE [Concomitant]
  9. ASPIRIN [Concomitant]

REACTIONS (2)
  - HEADACHE [None]
  - NERVOUSNESS [None]
